FAERS Safety Report 7650506-7 (Version None)
Quarter: 2011Q3

REPORT INFORMATION
  Report Type: 
  Country: None (occurrence: None)
  Receive Date: 20110802
  Receipt Date: 20110727
  Transmission Date: 20111222
  Serious: Yes (Other)
  Sender: FDA-Public Use
  Company Number: US-GLAXOSMITHKLINE-A0938545A

PATIENT
  Age: 79 Year
  Sex: Female

DRUGS (10)
  1. COREG CR [Suspect]
     Indication: ANGINA UNSTABLE
     Dosage: 20MG PER DAY
     Route: 048
     Dates: start: 20110313, end: 20110428
  2. PLAVIX [Concomitant]
  3. MIRTAZAPINE [Concomitant]
  4. ASPIRIN [Concomitant]
  5. UNSPECIFIED MEDICATION [Concomitant]
  6. ANTIBIOTIC (UNKNOWN NAME) [Concomitant]
  7. CALCIUM + D [Concomitant]
  8. OMEPRAZOLE [Concomitant]
  9. ALENDRONATE SODIUM [Concomitant]
  10. CENTRUM SILVER [Concomitant]

REACTIONS (1)
  - HALLUCINATION [None]
